FAERS Safety Report 5968224-X (Version None)
Quarter: 2008Q4

REPORT INFORMATION
  Report Type: 
  Country: None (occurrence: None)
  Receive Date: 20081126
  Receipt Date: 20081119
  Transmission Date: 20090506
  Serious: Yes (Life-Threatening)
  Sender: FDA-Public Use
  Company Number: B0546993A

PATIENT
  Age: 67 Year
  Sex: Male
  Weight: 108 kg

DRUGS (10)
  1. AVODART [Suspect]
     Route: 048
     Dates: start: 20080901
  2. AMLODIPINE [Concomitant]
  3. BUDESONIDE [Concomitant]
  4. DOXAZOSIN MESYLATE [Concomitant]
  5. FLUTICASONE PROPIONATE [Concomitant]
  6. LANSOPRAZOLE [Concomitant]
  7. METFORMIN [Concomitant]
  8. ALBUTEROL SULFATE [Concomitant]
  9. RAMIPRIL [Concomitant]
  10. SIMVASTATIN [Concomitant]

REACTIONS (4)
  - BLISTER [None]
  - HYPERSENSITIVITY [None]
  - RASH [None]
  - URTICARIA [None]
